FAERS Safety Report 5414000-6 (Version None)
Quarter: 2007Q3

REPORT INFORMATION
  Report Type: 
  Country: None (occurrence: None)
  Receive Date: 20070814
  Receipt Date: 20070803
  Transmission Date: 20080115
  Serious: Yes (Hospitalization)
  Sender: FDA-Public Use
  Company Number: GB-PURDUE-GBR_2007_0003163

PATIENT
  Age: 39 Year
  Sex: Male

DRUGS (3)
  1. OXYCODONE HCL [Suspect]
     Indication: DRUG USE FOR UNKNOWN INDICATION
     Route: 065
  2. AMITRIPTYLINE HCL [Concomitant]
     Indication: DRUG USE FOR UNKNOWN INDICATION
     Route: 065
  3. DOMPERIDONE MALEATE [Concomitant]
     Indication: DRUG USE FOR UNKNOWN INDICATION
     Route: 065

REACTIONS (9)
  - AGITATION [None]
  - CELLULITIS [None]
  - CONFUSIONAL STATE [None]
  - DISORIENTATION [None]
  - DYSKINESIA [None]
  - HALLUCINATION [None]
  - MYOCLONUS [None]
  - RESTLESSNESS [None]
  - SCROTAL OEDEMA [None]
